FAERS Safety Report 5028200-0 (Version None)
Quarter: 2006Q2

REPORT INFORMATION
  Report Type: 
  Country: None (occurrence: None)
  Receive Date: 20060613
  Receipt Date: 20060605
  Transmission Date: 20061013
  Serious: Yes (Death)
  Sender: FDA-Public Use
  Company Number: 200614012BWH

PATIENT
  Age: 54 Year
  Sex: Male

DRUGS (7)
  1. SORAFENIB [Suspect]
     Indication: MALIGNANT FIBROUS HISTIOCYTOMA
     Dosage: 200 MG, BID, ORAL
     Route: 048
     Dates: end: 20060430
  2. AVASTIN [Suspect]
     Dosage: INTRAVENOUS
     Route: 042
     Dates: start: 20060111, end: 20060417
  3. MORPHINE [Concomitant]
  4. HYDROCHLOROTHIAZIDE [Concomitant]
  5. DOLUSATE [Concomitant]
  6. LISINOPRIL [Concomitant]
  7. MAXZIDE [Concomitant]

REACTIONS (9)
  - ANOREXIA [None]
  - AXILLARY MASS [None]
  - COUGH [None]
  - DYSPHONIA [None]
  - FATIGUE [None]
  - NEOPLASM PROGRESSION [None]
  - PULMONARY HAEMORRHAGE [None]
  - PULMONARY MASS [None]
  - WEIGHT DECREASED [None]
